FAERS Safety Report 10810549 (Version 1)
Quarter: 2015Q1

REPORT INFORMATION
  Report Type: Report from Study
  Country: US (occurrence: None)
  Receive Date: 20150212
  Receipt Date: 20150212
  Transmission Date: 20150721
  Serious: Yes (Other)
  Sender: FDA-Public Use
  Company Number: 2014SA080125

PATIENT
  Age: 63 Year
  Sex: Male

DRUGS (2)
  1. INSULIN [Concomitant]
     Active Substance: INSULIN NOS
  2. LANTUS [Suspect]
     Active Substance: INSULIN GLARGINE
     Indication: TYPE 2 DIABETES MELLITUS
     Dates: start: 2013, end: 2014

REACTIONS (3)
  - Drug dose omission [None]
  - Self-medication [None]
  - Subcutaneous abscess [None]

NARRATIVE: CASE EVENT DATE: 201403
